FAERS Safety Report 8276128-5 (Version None)
Quarter: 2012Q2

REPORT INFORMATION
  Report Type: 
  Country: None (occurrence: None)
  Receive Date: 20120412
  Receipt Date: 20120402
  Transmission Date: 20120825
  Serious: Yes (Hospitalization)
  Sender: FDA-Public Use
  Company Number: US-JNJFOC-20120401596

PATIENT
  Sex: Female
  Weight: 41.5 kg

DRUGS (4)
  1. HUMIRA [Concomitant]
     Dates: start: 20101203
  2. ANTIBIOTICS UNSPECIFIED [Concomitant]
  3. MESALAMINE [Concomitant]
  4. INFLIXIMAB, RECOMBINANT [Suspect]
     Indication: CROHN'S DISEASE
     Route: 042
     Dates: start: 20090207, end: 20101208

REACTIONS (1)
  - CROHN'S DISEASE [None]
